FAERS Safety Report 5065845-6 (Version None)
Quarter: 2006Q3

REPORT INFORMATION
  Report Type: 
  Country: None (occurrence: None)
  Receive Date: 20060728
  Receipt Date: 20060728
  Transmission Date: 20061208
  Serious: Yes (Death)
  Sender: FDA-Public Use
  Company Number: None

PATIENT
  Age: 46 Year
  Sex: Male
  Weight: 86.1834 kg

DRUGS (1)
  1. EFFEXOR XR [Suspect]
     Indication: STRESS
     Dosage: 150 MG   1 A DAY
     Dates: start: 20040101, end: 20060326

REACTIONS (2)
  - GUN SHOT WOUND [None]
  - HOMICIDAL IDEATION [None]
